FAERS Safety Report 7250206-1 (Version None)
Quarter: 2011Q1

REPORT INFORMATION
  Report Type: 
  Country: None (occurrence: None)
  Receive Date: 20110128
  Receipt Date: 20110112
  Transmission Date: 20110831
  Serious: Yes (Other)
  Sender: FDA-Public Use
  Company Number: US-BAYER-2010-000306

PATIENT
  Sex: Female
  Weight: 67.59 kg

DRUGS (1)
  1. MIRENA [Suspect]
     Indication: CONTRACEPTION
     Dosage: 20 ?G, CONTINUOUS
     Route: 015
     Dates: start: 20080320, end: 20101117

REACTIONS (2)
  - DEVICE DISLOCATION [None]
  - MENSTRUATION IRREGULAR [None]
